FAERS Safety Report 7813845-2 (Version None)
Quarter: 2011Q4

REPORT INFORMATION
  Report Type: 
  Country: None (occurrence: None)
  Receive Date: 20111014
  Receipt Date: 20111004
  Transmission Date: 20120403
  Serious: Yes (Other)
  Sender: FDA-Public Use
  Company Number: US-US-EMD SERONO, INC.-7087434

PATIENT
  Sex: Female

DRUGS (2)
  1. REBIF [Suspect]
     Indication: PRODUCT USED FOR UNKNOWN INDICATION
     Route: 058
     Dates: start: 20090528
  2. UNSPECIFIED OVER THE COUNTER MEDICATION [Concomitant]
     Indication: PREMEDICATION

REACTIONS (4)
  - INJECTION SITE HAEMATOMA [None]
  - CHILLS [None]
  - OPTIC NEURITIS [None]
  - NASOPHARYNGITIS [None]
